FAERS Safety Report 22160076 (Version 1)
Quarter: 2023Q1

REPORT INFORMATION
  Report Type: Spontaneous
  Country: GR (occurrence: GR)
  Receive Date: 20230331
  Receipt Date: 20230331
  Transmission Date: 20230418
  Serious: Yes (Other)
  Sender: FDA-Public Use
  Company Number: None

PATIENT
  Sex: Male

DRUGS (5)
  1. LEVITRA [Suspect]
     Active Substance: VARDENAFIL HYDROCHLORIDE
  2. AVANAFIL [Suspect]
     Active Substance: AVANAFIL
  3. RISPERDAL [Suspect]
     Active Substance: RISPERIDONE
  4. CIALIS [Suspect]
     Active Substance: TADALAFIL
  5. TAVOR CR [Concomitant]

REACTIONS (1)
  - Agitation [Unknown]
